FAERS Safety Report 7600841-3 (Version None)
Quarter: 2011Q3

REPORT INFORMATION
  Report Type: 
  Country: None (occurrence: None)
  Receive Date: 20110711
  Receipt Date: 20110706
  Transmission Date: 20111222
  Serious: Yes (Hospitalization, Other)
  Sender: FDA-Public Use
  Company Number: JP-ACTELION-A-CH2010-41080

PATIENT
  Age: 38 Year
  Sex: Female

DRUGS (6)
  1. TRACLEER [Suspect]
     Dosage: 125 MG, QD
     Route: 048
     Dates: start: 20100101
  2. BERAPROST SODIUM [Concomitant]
  3. TRACLEER [Suspect]
     Indication: PULMONARY ARTERIAL HYPERTENSION
     Dosage: 62.5 MG, QD
     Route: 048
     Dates: start: 20100101, end: 20100301
  4. TRACLEER [Suspect]
     Dosage: 125 MG, QD
     Route: 048
     Dates: start: 20100301, end: 20100401
  5. TRACLEER [Suspect]
     Dosage: 250 MG, QID
     Route: 048
     Dates: start: 20100401, end: 20100101
  6. CYCLOPHOSPHAMIDE [Concomitant]
     Dosage: UNK
     Dates: start: 20100101, end: 20100201

REACTIONS (3)
  - LIVER FUNCTION TEST ABNORMAL [None]
  - PANCYTOPENIA [None]
  - HEPATIC ENCEPHALOPATHY [None]
